FAERS Safety Report 7508048-5 (Version None)
Quarter: 2011Q2

REPORT INFORMATION
  Report Type: 
  Country: None (occurrence: None)
  Receive Date: 20110527
  Receipt Date: 20110509
  Transmission Date: 20111010
  Serious: No
  Sender: FDA-Public Use
  Company Number: US-B.I. PHARMACEUTICALS,INC./RIDGEFIELD-2011-BP-03606BP

PATIENT
  Sex: Male

DRUGS (3)
  1. VITAMINS [Concomitant]
     Indication: SUPPLEMENTATION THERAPY
  2. PRADAXA [Suspect]
     Indication: ATRIAL FIBRILLATION
     Dosage: 300 MG
     Route: 048
     Dates: start: 20110101
  3. ASPIRIN [Concomitant]
     Indication: PROPHYLAXIS

REACTIONS (1)
  - ATRIAL FIBRILLATION [None]
